FAERS Safety Report 4375538-6 (Version None)
Quarter: 2004Q2

REPORT INFORMATION
  Report Type: 
  Country: None (occurrence: None)
  Receive Date: 20040607
  Receipt Date: 20040525
  Transmission Date: 20050107
  Serious: Yes (Hospitalization)
  Sender: FDA-Public Use
  Company Number: 04P-163-0261896-00

PATIENT
  Age: 74 Year
  Sex: Female

DRUGS (14)
  1. HUMIRA [Suspect]
     Dosage: SEE IMAGE, SUBCUTANEOUS
     Route: 058
     Dates: start: 20030307, end: 20040401
  2. HUMIRA [Suspect]
     Dosage: SEE IMAGE, SUBCUTANEOUS
     Route: 058
     Dates: start: 20040401, end: 20040501
  3. HUMIRA [Suspect]
     Dosage: SEE IMAGE, SUBCUTANEOUS
     Route: 058
     Dates: start: 20040501
  4. MULTIVITAMIN [Concomitant]
  5. IBUPROFEN [Concomitant]
  6. OXYCODONE [Concomitant]
  7. ATENOLOL [Concomitant]
  8. VERAPAMIL [Concomitant]
  9. LISINOPRIL [Concomitant]
  10. FUROSEMIDE [Concomitant]
  11. CLONIDINE HCL [Concomitant]
  12. ASPIRIN [Concomitant]
  13. PREDNISONE [Concomitant]
  14. RISEDRONATE SODIUM [Concomitant]

REACTIONS (4)
  - BLOOD PRESSURE INCREASED [None]
  - CONDITION AGGRAVATED [None]
  - NAUSEA [None]
  - RENAL ARTERY OCCLUSION [None]
